FAERS Safety Report 21098024 (Version 2)
Quarter: 2022Q3

REPORT INFORMATION
  Report Type: Spontaneous
  Country: US (occurrence: US)
  Receive Date: 20220719
  Receipt Date: 20220728
  Transmission Date: 20221027
  Serious: No
  Sender: FDA-Public Use
  Company Number: US-BAXTER-2022BAX014845

PATIENT
  Sex: Male

DRUGS (1)
  1. PENICILLIN G [Suspect]
     Active Substance: PENICILLIN G
     Route: 065

REACTIONS (1)
  - Hypersensitivity [Unknown]
